FAERS Safety Report 24129198 (Version 1)
Quarter: 2024Q3

REPORT INFORMATION
  Report Type: Spontaneous
  Country: US (occurrence: US)
  Receive Date: 20240723
  Receipt Date: 20240723
  Transmission Date: 20241016
  Serious: No
  Sender: SUNOVION
  Company Number: US-SMPA-2024SPA000142

PATIENT

DRUGS (2)
  1. APTIOM [Suspect]
     Active Substance: ESLICARBAZEPINE ACETATE
     Indication: Facial pain
     Dosage: 200 MG, QD
     Route: 048
     Dates: start: 20240711
  2. APTIOM [Suspect]
     Active Substance: ESLICARBAZEPINE ACETATE
     Indication: Trigeminal neuralgia
     Dosage: 400 MG, QD
     Route: 048

REACTIONS (3)
  - Pain [Unknown]
  - Off label use [Unknown]
  - Prescribed underdose [Unknown]

NARRATIVE: CASE EVENT DATE: 20240711
